FAERS Safety Report 9385682 (Version 2)
Quarter: 2013Q3

REPORT INFORMATION
  Report Type: Spontaneous
  Country: GB (occurrence: GB)
  Receive Date: 20130705
  Receipt Date: 20130807
  Transmission Date: 20140515
  Serious: Yes (Other)
  Sender: FDA-Public Use
  Company Number: GB-009507513-1307GBR001129

PATIENT
  Age: 58 Year
  Sex: Female
  Weight: 85.72 kg

DRUGS (8)
  1. SIMVASTATIN [Suspect]
     Indication: BLOOD CHOLESTEROL INCREASED
     Dosage: 20 MG, UNK
     Route: 048
     Dates: start: 20120808, end: 20121212
  2. BETAHISTINE [Concomitant]
  3. FLUOXETINE [Concomitant]
  4. LANSOPRAZOLE [Concomitant]
  5. LIVIAL [Concomitant]
  6. MIRTAZAPINE [Concomitant]
  7. ACETAMINOPHEN [Concomitant]
  8. THYROXIN [Concomitant]

REACTIONS (8)
  - Dysphonia [Not Recovered/Not Resolved]
  - Influenza like illness [Recovering/Resolving]
  - Chest discomfort [Not Recovered/Not Resolved]
  - Dyspnoea [Not Recovered/Not Resolved]
  - Swelling face [Recovering/Resolving]
  - Malaise [Recovering/Resolving]
  - Pyrexia [Recovering/Resolving]
  - Drug ineffective [Unknown]
